FAERS Safety Report 8062930-1 (Version None)
Quarter: 2012Q1

REPORT INFORMATION
  Report Type: 
  Country: None (occurrence: None)
  Receive Date: 20120123
  Receipt Date: 20120123
  Transmission Date: 20120608
  Serious: Yes (Other)
  Sender: FDA-Public Use
  Company Number: None

PATIENT
  Age: 10 Year
  Sex: Male

DRUGS (2)
  1. SINGULAIR [Suspect]
     Indication: SEASONAL ALLERGY
     Dosage: 10MG
     Route: 048
     Dates: start: 20080206, end: 20100518
  2. SINGULAIR [Suspect]
     Indication: ASTHMA
     Dosage: 10MG
     Route: 048
     Dates: start: 20080206, end: 20100518

REACTIONS (8)
  - SOMNAMBULISM [None]
  - SLEEP TALKING [None]
  - NIGHTMARE [None]
  - MUSCLE TWITCHING [None]
  - FEAR [None]
  - HOMICIDAL IDEATION [None]
  - SUICIDAL IDEATION [None]
  - ABNORMAL BEHAVIOUR [None]
